FAERS Safety Report 20290582 (Version 1)
Quarter: 2022Q1

REPORT INFORMATION
  Report Type: Spontaneous
  Country: US (occurrence: None)
  Receive Date: 20220103
  Receipt Date: 20220103
  Transmission Date: 20220423
  Serious: Yes (Hospitalization, Other)
  Sender: FDA-Public Use
  Company Number: None

PATIENT
  Age: 31 Year
  Sex: Female
  Weight: 62.6 kg

DRUGS (1)
  1. JYNARQUE [Suspect]
     Active Substance: TOLVAPTAN
     Indication: Congenital cystic kidney disease
     Dosage: OTHER FREQUENCY : 30MG QAM/15MG QPM;?
     Route: 048
     Dates: start: 20211101

REACTIONS (7)
  - Abdominal pain [None]
  - Flank pain [None]
  - Renal dysplasia [None]
  - Pyrexia [None]
  - Dysuria [None]
  - Nausea [None]
  - Weight decreased [None]

NARRATIVE: CASE EVENT DATE: 20211220
